FAERS Safety Report 9567051 (Version 1)
Quarter: 2013Q3

REPORT INFORMATION
  Report Type: Spontaneous
  Country: US (occurrence: US)
  Receive Date: 20130930
  Receipt Date: 20130930
  Transmission Date: 20140515
  Serious: No
  Sender: FDA-Public Use
  Company Number: US-AMGEN-USASP2012061790

PATIENT
  Age: 34 Year
  Sex: Female
  Weight: 205 kg

DRUGS (7)
  1. ENBREL [Suspect]
     Indication: PRODUCT USED FOR UNKNOWN INDICATION
     Dosage: 50 MG, QWK
     Route: 058
  2. METHOTREXATE [Concomitant]
     Dosage: 2.5 MG, UNK
  3. PREDNISONE [Concomitant]
     Dosage: 10 MG, UNK
  4. FOLIC ACID [Concomitant]
     Dosage: UNK
  5. CALCIUM [Concomitant]
     Dosage: 500 UNK, UNK
  6. VITAMIN D                          /00107901/ [Concomitant]
     Dosage: 50000 UNIT, UNK
  7. VITAMIN B6 [Concomitant]
     Dosage: 100 MG, UNK

REACTIONS (1)
  - Paraesthesia [Unknown]
